FAERS Safety Report 8108528-8 (Version None)
Quarter: 2012Q1

REPORT INFORMATION
  Report Type: 
  Country: None (occurrence: None)
  Receive Date: 20120202
  Receipt Date: 20120127
  Transmission Date: 20120608
  Serious: Yes (Hospitalization, Other)
  Sender: FDA-Public Use
  Company Number: PHFR2011GB006808

PATIENT
  Sex: Male

DRUGS (7)
  1. LACTULOSE [Concomitant]
     Indication: CONSTIPATION
  2. VALPROATE SODIUM [Concomitant]
     Indication: AFFECTIVE DISORDER
     Dosage: 1000 MG, AT NIGHT
     Route: 048
  3. AMITRIPTYLINE HCL [Concomitant]
  4. HYOSCINE [Concomitant]
     Indication: SALIVARY HYPERSECRETION
  5. CLOZARIL [Suspect]
     Indication: SCHIZOPHRENIA
     Dosage: 500 MG, QD
     Route: 048
     Dates: start: 20101202
  6. CLOZARIL [Suspect]
     Dosage: 50 MG, UNK
     Route: 048
     Dates: end: 20111125
  7. VALPROATE SODIUM [Concomitant]
     Dosage: 1500 MG, AT NIGHT
     Route: 048

REACTIONS (8)
  - ANTIPSYCHOTIC DRUG LEVEL ABOVE THERAPEUTIC [None]
  - UPPER LIMB FRACTURE [None]
  - DYSARTHRIA [None]
  - LETHARGY [None]
  - PALLOR [None]
  - SALIVARY HYPERSECRETION [None]
  - ANKLE FRACTURE [None]
  - CLUMSINESS [None]
